FAERS Safety Report 8233477-4 (Version None)
Quarter: 2012Q1

REPORT INFORMATION
  Report Type: 
  Country: None (occurrence: None)
  Receive Date: 20120326
  Receipt Date: 20120312
  Transmission Date: 20120608
  Serious: Yes (Hospitalization, Other)
  Sender: FDA-Public Use
  Company Number: DE-MYLANLABS-2012S1005382

PATIENT
  Sex: Female
  Weight: 110.3 kg

DRUGS (12)
  1. CARBAMAZEPINE [Suspect]
     Indication: PRODUCT USED FOR UNKNOWN INDICATION
     Dosage: DAILY DOSE: 300 MG MILLIGRAM(S) EVERY DAY
     Route: 048
     Dates: end: 20110725
  2. CARBAMAZEPINE [Suspect]
     Dosage: DAILY DOSE: 400 MG MILLIGRAM(S) EVERY DAY
     Route: 048
     Dates: start: 20110726
  3. VENLAFAXINE HYDROCHLORIDE [Suspect]
     Dosage: 75-300 MG AM TAG
     Route: 048
     Dates: start: 20100701, end: 20110710
  4. VERA [Concomitant]
     Indication: PRODUCT USED FOR UNKNOWN INDICATION
     Dosage: SCHON LANGER
     Route: 048
  5. AMITRIPTYLINE HCL [Suspect]
     Dosage: DAILY DOSE: 300 MG MILLIGRAM(S) EVERY DAY
     Route: 048
     Dates: start: 20110815
  6. SEROQUEL [Suspect]
     Indication: PRODUCT USED FOR UNKNOWN INDICATION
     Dosage: DAILY DOSE: 350 MG MILLIGRAM(S) EVERY DAY
     Route: 048
     Dates: start: 20100501, end: 20110629
  7. AMITRIPTYLINE HCL [Suspect]
     Indication: PRODUCT USED FOR UNKNOWN INDICATION
     Dosage: DAILY DOSE: 25 MG MILLIGRAM(S) EVERY DAY
     Route: 048
     Dates: start: 20100501, end: 20110719
  8. AMITRIPTYLINE HCL [Suspect]
     Dosage: 50-225 MG AM TAG
     Route: 048
     Dates: start: 20110720, end: 20110814
  9. SEROQUEL [Suspect]
     Dosage: 100-300 MG AM TAG
     Route: 048
     Dates: start: 20110630, end: 20110715
  10. TILIDIN [Suspect]
     Indication: ANALGESIC THERAPY
     Dosage: SCHON LANGER
     Route: 048
  11. VENLAFAXINE HYDROCHLORIDE [Suspect]
     Indication: PRODUCT USED FOR UNKNOWN INDICATION
     Dosage: DAILY DOSE: 375 MG MILLIGRAM(S) EVERY DAY
     Route: 048
     Dates: start: 20100501, end: 20110630
  12. DIOVAN [Concomitant]
     Indication: HYPERTENSION
     Dosage: DAILY DOSE: 80 MG MILLIGRAM(S) EVERY DAY
     Route: 048
     Dates: start: 20100501

REACTIONS (2)
  - WEIGHT INCREASED [None]
  - BLOOD CHOLESTEROL INCREASED [None]
